FAERS Safety Report 12424947 (Version 6)
Quarter: 2019Q1

REPORT INFORMATION
  Report Type: Report from Study
  Country: JP (occurrence: JP)
  Receive Date: 20160601
  Receipt Date: 20190206
  Transmission Date: 20190417
  Serious: Yes (Hospitalization, Other)
  Sender: FDA-Public Use
  Company Number: JP-OTSUKA-2016_011659

PATIENT
  Age: 79 Year
  Sex: Male
  Weight: 54.8 kg

DRUGS (3)
  1. CILOSTAZOL. [Suspect]
     Active Substance: CILOSTAZOL
     Indication: ISCHAEMIC STROKE
     Dosage: 200 MG, DAILY DOSE (DIVIDED 2 DOSES)
     Route: 048
     Dates: start: 20141020, end: 20151212
  2. ASPIRIN. [Suspect]
     Active Substance: ASPIRIN
     Indication: ISCHAEMIC STROKE
     Dosage: 100 MG, QD
     Route: 048
     Dates: start: 20141020, end: 20151212
  3. STATIN [Concomitant]
     Active Substance: UNSPECIFIED INGREDIENT
     Indication: DYSLIPIDAEMIA
     Dosage: UNK
     Route: 048

REACTIONS (1)
  - Transient ischaemic attack [Recovered/Resolved]

NARRATIVE: CASE EVENT DATE: 20151213
